FAERS Safety Report 23191224 (Version 1)
Quarter: 2023Q4

REPORT INFORMATION
  Report Type: Report from Study
  Country: US (occurrence: US)
  Receive Date: 20231116
  Receipt Date: 20231116
  Transmission Date: 20240110
  Serious: Yes (Hospitalization, Other)
  Sender: FDA-Public Use
  Company Number: US-ABBVIE-5495745

PATIENT
  Age: 51 Year
  Sex: Female

DRUGS (1)
  1. HUMIRA [Suspect]
     Active Substance: ADALIMUMAB
     Indication: Rheumatoid arthritis
     Dosage: FORM STRENGTH: 40 MILLIGRAM?CITRATE FREE?STOP DATE 2023
     Route: 058
     Dates: start: 20230713

REACTIONS (4)
  - Hepatic failure [Unknown]
  - Swelling face [Unknown]
  - Eye swelling [Unknown]
  - Illness [Unknown]

NARRATIVE: CASE EVENT DATE: 20231001
